FAERS Safety Report 9712895 (Version 1)
Quarter: 2013Q4

REPORT INFORMATION
  Report Type: Spontaneous
  Country: US (occurrence: US)
  Receive Date: 20131126
  Receipt Date: 20131126
  Transmission Date: 20140711
  Serious: No
  Sender: FDA-Public Use
  Company Number: US-BRISTOL-MYERS SQUIBB COMPANY-19348531

PATIENT
  Age: 69 Year
  Sex: Female
  Weight: 81.63 kg

DRUGS (3)
  1. BYDUREON [Suspect]
     Dates: start: 20130704, end: 20130815
  2. LIPITOR [Concomitant]
  3. THYROID [Concomitant]

REACTIONS (4)
  - Injection site mass [Unknown]
  - Injection site discolouration [Unknown]
  - Injection site pruritus [Unknown]
  - Injection site pain [Unknown]
